FAERS Safety Report 10883389 (Version 3)
Quarter: 2015Q2

REPORT INFORMATION
  Report Type: Spontaneous
  Country: US (occurrence: US)
  Receive Date: 20150303
  Receipt Date: 20150401
  Transmission Date: 20150821
  Serious: No
  Sender: FDA-Public Use
  Company Number: US-GLAXOSMITHKLINE-US2015GSK028073

PATIENT
  Age: 59 Year
  Sex: Male

DRUGS (10)
  1. VOTRIENT [Suspect]
     Active Substance: PAZOPANIB HYDROCHLORIDE
     Indication: RENAL CANCER
     Dosage: 800 MG, QD
     Route: 048
  2. LISINOPRIL. [Concomitant]
     Active Substance: LISINOPRIL
  3. DILTIAZEM [Concomitant]
     Active Substance: DILTIAZEM
  4. OXYCODONE [Concomitant]
     Active Substance: OXYCODONE
  5. MORPHINE SULFATE. [Concomitant]
     Active Substance: MORPHINE SULFATE
  6. FISH OIL [Concomitant]
     Active Substance: FISH OIL
  7. CLONIDINE. [Concomitant]
     Active Substance: CLONIDINE
  8. MORPHINE [Concomitant]
     Active Substance: MORPHINE
  9. VOTRIENT [Suspect]
     Active Substance: PAZOPANIB HYDROCHLORIDE
     Dosage: UNK
  10. XANAX [Concomitant]
     Active Substance: ALPRAZOLAM

REACTIONS (9)
  - Cough [Unknown]
  - Dizziness [Unknown]
  - Musculoskeletal pain [Unknown]
  - Wound [Unknown]
  - Skin disorder [Unknown]
  - Weight decreased [Unknown]
  - Diarrhoea [Unknown]
  - Wheezing [Unknown]
  - Hepatic lesion [Unknown]

NARRATIVE: CASE EVENT DATE: 20150216
